FAERS Safety Report 6285011-6 (Version None)
Quarter: 2009Q3

REPORT INFORMATION
  Report Type: 
  Country: None (occurrence: None)
  Receive Date: 20090727
  Receipt Date: 20090330
  Transmission Date: 20100115
  Serious: No
  Sender: FDA-Public Use
  Company Number: US-ABBOTT-09P-163-0565768-00

PATIENT
  Age: 54 Year
  Sex: Male

DRUGS (4)
  1. RITONAVIR SOFT GELATIN CAPSULES [Suspect]
     Indication: HIV INFECTION
     Dates: start: 20081101
  2. PREZISTA [Suspect]
     Indication: HIV INFECTION
     Route: 048
     Dates: start: 20081101
  3. TRUVADA [Suspect]
     Indication: HIV INFECTION
     Dates: start: 20081101
  4. RALTEGRAVIR [Suspect]
     Indication: HIV INFECTION
     Dates: start: 20081101

REACTIONS (1)
  - EYE IRRITATION [None]
